FAERS Safety Report 7486114-0 (Version None)
Quarter: 2011Q2

REPORT INFORMATION
  Report Type: 
  Country: None (occurrence: None)
  Receive Date: 20110517
  Receipt Date: 20110510
  Transmission Date: 20111010
  Serious: Yes (Other)
  Sender: FDA-Public Use
  Company Number: US-AMGEN-USASP2011021322

PATIENT
  Age: 50 Year
  Sex: Male
  Weight: 52 kg

DRUGS (7)
  1. PREDNISONE TAB [Concomitant]
     Dosage: 10 MG, BID
     Route: 048
     Dates: start: 20110307
  2. K-DUR [Concomitant]
     Dosage: 20 A?G, BID
     Dates: start: 20110307
  3. OXYCODONE HCL [Concomitant]
     Dosage: 5 MG, PRN
  4. NPLATE [Suspect]
     Indication: IDIOPATHIC THROMBOCYTOPENIC PURPURA
     Dosage: 432 A?G, QWK
     Route: 058
     Dates: start: 20110207
  5. RITUXIMAB [Concomitant]
  6. TUMS                               /00108001/ [Concomitant]
     Dosage: UNK
     Dates: start: 20110207
  7. PRILOSEC [Concomitant]
     Dosage: 20 MG, BID
     Route: 048
     Dates: start: 20110307

REACTIONS (6)
  - INFUSION RELATED REACTION [None]
  - VOMITING [None]
  - FEELING COLD [None]
  - NASAL CONGESTION [None]
  - DEEP VEIN THROMBOSIS [None]
  - NAUSEA [None]
